FAERS Safety Report 9535560 (Version 1)
Quarter: 2013Q3

REPORT INFORMATION
  Report Type: Spontaneous
  Country: US (occurrence: US)
  Receive Date: 20130919
  Receipt Date: 20130919
  Transmission Date: 20140515
  Serious: Yes (Other)
  Sender: FDA-Public Use
  Company Number: US-PAR PHARMACEUTICAL, INC-2013SCPR007641

PATIENT
  Sex: 0

DRUGS (1)
  1. DIVALPROEX SODIUM ER [Suspect]
     Indication: CONVULSION
     Dosage: UNK, UNKNOWN
     Route: 048

REACTIONS (3)
  - Oesophageal obstruction [Recovered/Resolved]
  - Oropharyngeal pain [Recovered/Resolved]
  - Product quality issue [Unknown]
